FAERS Safety Report 24562022 (Version 2)
Quarter: 2024Q4

REPORT INFORMATION
  Report Type: Spontaneous
  Country: JP (occurrence: JP)
  Receive Date: 20241029
  Receipt Date: 20241030
  Transmission Date: 20250114
  Serious: Yes (Hospitalization, Other)
  Sender: PFIZER
  Company Number: JP-PFIZER INC-PV202400136044

PATIENT
  Age: 7 Decade
  Sex: Male
  Weight: 64 kg

DRUGS (3)
  1. GEMCITABINE HYDROCHLORIDE [Suspect]
     Active Substance: GEMCITABINE HYDROCHLORIDE
     Indication: Pancreatic carcinoma
     Dosage: 1000 MG/M2 (15000 MG/M2)(DURATION: 6 MONTHS)  8 CYCLE (FIRST-LINE THERAPY)
  2. PACLITAXEL [Concomitant]
     Active Substance: PACLITAXEL
     Indication: Pancreatic carcinoma
     Dosage: UNK UNK, CYCLIC, 8 CYCLE (FIRST-LINE THERAPY)
  3. ROFECOXIB [Concomitant]
     Active Substance: ROFECOXIB
     Dosage: UNK

REACTIONS (2)
  - Thrombotic microangiopathy [Recovered/Resolved]
  - Renal impairment [Unknown]
